FAERS Safety Report 4939706-4 (Version None)
Quarter: 2006Q1

REPORT INFORMATION
  Report Type: 
  Country: None (occurrence: None)
  Receive Date: 20060310
  Receipt Date: 20050930
  Transmission Date: 20060701
  Serious: Yes (Death, Hospitalization, Disabling, Other)
  Sender: FDA-Public Use
  Company Number: US-MERCK-0510USA01934

PATIENT
  Age: 64 Year
  Sex: Female
  Weight: 95 kg

DRUGS (9)
  1. VIOXX [Suspect]
     Indication: ARTHRITIS
     Route: 048
     Dates: start: 19990914, end: 20000101
  2. SERZONE [Concomitant]
     Route: 065
  3. LOTENSIN [Concomitant]
     Route: 065
  4. NORMODYNE [Concomitant]
     Route: 065
  5. HYDRODIURIL [Concomitant]
     Route: 065
  6. CIMETIDINE [Concomitant]
     Route: 065
  7. TRAZODONE HYDROCHLORIDE [Concomitant]
     Route: 065
  8. CLONIDINE [Concomitant]
     Route: 065
  9. DARVOCET [Concomitant]
     Route: 065

REACTIONS (23)
  - ANGINA UNSTABLE [None]
  - ARTERIOSCLEROSIS [None]
  - CARDIAC ARREST [None]
  - CARDIAC DISORDER [None]
  - CARDIAC FAILURE CONGESTIVE [None]
  - CEREBROVASCULAR ACCIDENT [None]
  - CORONARY ARTERY DISEASE [None]
  - DECUBITUS ULCER [None]
  - DIABETES MELLITUS NON-INSULIN-DEPENDENT [None]
  - DIARRHOEA [None]
  - GOUT [None]
  - HYPERTENSION [None]
  - HYPOPHOSPHATAEMIA [None]
  - IRON DEFICIENCY ANAEMIA [None]
  - LOWER GASTROINTESTINAL HAEMORRHAGE [None]
  - MIGRAINE [None]
  - MYOCARDIAL INFARCTION [None]
  - PERIPHERAL VASCULAR DISORDER [None]
  - RENAL FAILURE [None]
  - RENAL IMPAIRMENT [None]
  - TRANSIENT ISCHAEMIC ATTACK [None]
  - VERTIGO [None]
  - VOLUME BLOOD INCREASED [None]
